FAERS Safety Report 7436703-4 (Version None)
Quarter: 2011Q2

REPORT INFORMATION
  Report Type: 
  Country: None (occurrence: None)
  Receive Date: 20110426
  Receipt Date: 20110419
  Transmission Date: 20111010
  Serious: Yes (Life-Threatening, Hospitalization)
  Sender: FDA-Public Use
  Company Number: JP-JNJFOC-20101201179

PATIENT
  Age: 92 Year
  Sex: Female

DRUGS (6)
  1. DUROTEP MT [Suspect]
     Indication: ARTHRALGIA
     Route: 062
  2. MAGSENIUM OXIDE [Concomitant]
     Route: 065
  3. UNKNOWN MEDICATION [Concomitant]
     Indication: HYPERTENSION
     Route: 065
  4. DUROTEP MT [Suspect]
     Indication: PAIN
     Route: 062
  5. CODEINE PHOSPHATE [Concomitant]
     Route: 065
  6. METOCLOPRAMIDE [Concomitant]
     Route: 065

REACTIONS (1)
  - CEREBRAL INFARCTION [None]
